FAERS Safety Report 24237652 (Version 1)
Quarter: 2024Q3

REPORT INFORMATION
  Report Type: Spontaneous
  Country: US (occurrence: US)
  Receive Date: 20240822
  Receipt Date: 20240822
  Transmission Date: 20241016
  Serious: Yes (Life-Threatening, Hospitalization, Other)
  Sender: GRANULES INDIA
  Company Number: US-GRANULES-US-2024GRALIT00351

PATIENT
  Age: 72 Year
  Sex: Female

DRUGS (1)
  1. METFORMIN HYDROCHLORIDE [Suspect]
     Active Substance: METFORMIN HYDROCHLORIDE
     Indication: Product used for unknown indication
     Route: 065

REACTIONS (9)
  - Blindness transient [Recovered/Resolved]
  - Encephalopathy [Recovered/Resolved]
  - Gaze palsy [Recovered/Resolved]
  - Acute kidney injury [Recovered/Resolved]
  - Dysarthria [Recovered/Resolved]
  - Leukocytosis [Recovered/Resolved]
  - Haemodynamic instability [Recovered/Resolved]
  - Mental status changes [Recovered/Resolved]
  - Lactic acidosis [Recovered/Resolved]
